FAERS Safety Report 8886069 (Version 1)
Quarter: 2012Q4

REPORT INFORMATION
  Report Type: 
  Country: US (occurrence: US)
  Receive Date: 20121105
  Receipt Date: 20121105
  Transmission Date: 20130627
  Serious: Yes (Disabling, Other)
  Sender: FDA-Public Use
  Company Number: US-MERCK-1210USA012392

PATIENT

DRUGS (3)
  1. FOSAMAX [Suspect]
     Dosage: UNK
     Route: 048
     Dates: start: 2000, end: 2011
  2. FOSAMAX PLUS D [Suspect]
     Dosage: UNK
     Route: 048
     Dates: start: 2000, end: 2011
  3. FOSAMAX [Suspect]
     Dosage: UNK
     Route: 048
     Dates: start: 2000, end: 2011

REACTIONS (1)
  - Femur fracture [Not Recovered/Not Resolved]
